FAERS Safety Report 9071544 (Version 1)
Quarter: 2013Q1

REPORT INFORMATION
  Report Type: Report from Study
  Country: US (occurrence: US)
  Receive Date: 20130129
  Receipt Date: 20130129
  Transmission Date: 20140127
  Serious: No
  Sender: FDA-Public Use
  Company Number: US-ABBOTT-12P-163-0934149-00

PATIENT
  Age: 39 Year
  Sex: Male

DRUGS (6)
  1. HUMIRA 40 MG/0.8 ML PEN [Suspect]
     Indication: CROHN^S DISEASE
     Dosage: LOADING DOSE
     Dates: start: 20120505
  2. PREDNISONE [Concomitant]
     Indication: PRODUCT USED FOR UNKNOWN INDICATION
     Dosage: 10MG ONCE A DAY
  3. AZATHIOPRINE [Concomitant]
     Indication: CROHN^S DISEASE
     Dosage: 200MG ONCE A DAY
  4. DICYCLOMINE [Concomitant]
     Indication: POOR QUALITY SLEEP
     Dosage: 2 TABS 4 TIMES A DAY BEFORE MEALS AND AT NIGHT
  5. DICYCLOMINE [Concomitant]
     Indication: GASTRIC DISORDER
  6. ONDANSETRON [Concomitant]
     Indication: NAUSEA

REACTIONS (1)
  - Headache [Not Recovered/Not Resolved]
